FAERS Safety Report 11842094 (Version 2)
Quarter: 2015Q4

REPORT INFORMATION
  Report Type: Report from Study
  Country: JP (occurrence: JP)
  Receive Date: 20151216
  Receipt Date: 20151229
  Transmission Date: 20160305
  Serious: Yes (Death)
  Sender: FDA-Public Use
  Company Number: JP-DEP_13183_2015

PATIENT
  Age: 71 Year
  Sex: Male
  Weight: 54 kg

DRUGS (15)
  1. TAPENTA (TAPENTADOL) [Suspect]
     Active Substance: TAPENTADOL HYDROCHLORIDE
     Indication: CANCER PAIN
     Dosage: UNK
     Route: 048
     Dates: start: 20151116, end: 20151118
  2. ACETAMINOPHEN (PARACETAMOL) [Concomitant]
     Active Substance: ACETAMINOPHEN
     Indication: CANCER PAIN
     Dosage: DF
     Dates: start: 20151113
  3. OXYCODONE HYDROCHLORIDE (OXYCODONE HYDROCHLORIDE) [Concomitant]
     Active Substance: OXYCODONE HYDROCHLORIDE
     Dosage: DF
     Dates: start: 20151119, end: 20151119
  4. CISPLATIN (CISPLATIN) [Concomitant]
     Active Substance: CISPLATIN
     Indication: RENAL CANCER
     Dosage: DF
     Dates: start: 20151120, end: 20151120
  5. LOXOPROFEN SODIUM (LOXOPROFEN SODIUM) [Concomitant]
     Indication: CANCER PAIN
     Dosage: DF
     Dates: start: 20151113
  6. GEMCITABINE HYDROCHLORIDE (GEMCITABINE HYDROCHLORIDE) [Concomitant]
     Active Substance: GEMCITABINE HYDROCHLORIDE
     Indication: RENAL CANCER
     Dosage: DF
     Dates: start: 20151119, end: 20151119
  7. OXYCODONE HYDROCHLORIDE (OXYCODONE HYDROCHLORIDE) [Concomitant]
     Active Substance: OXYCODONE HYDROCHLORIDE
     Dosage: DF
     Dates: start: 20151120, end: 20151121
  8. OXYCODONE HYDROCHLORIDE (OXYCODONE HYDROCHLORIDE) [Concomitant]
     Active Substance: OXYCODONE HYDROCHLORIDE
     Dosage: DF
     Dates: start: 20151118, end: 20151118
  9. TAPENTA (TAPENTADOL) [Suspect]
     Active Substance: TAPENTADOL HYDROCHLORIDE
     Dosage: UNK
     Route: 048
     Dates: start: 20151119, end: 20151122
  10. TAPENTA (TAPENTADOL) [Suspect]
     Active Substance: TAPENTADOL HYDROCHLORIDE
     Route: 048
     Dates: start: 20151113, end: 20151115
  11. OXYCODONE HYDROCHLORIDE (OXYCODONE HYDROCHLORIDE) [Concomitant]
     Active Substance: OXYCODONE HYDROCHLORIDE
     Dosage: DF
     Dates: start: 20151122, end: 20151122
  12. OXYCODONE HYDROCHLORIDE (OXYCODONE HYDROCHLORIDE) [Concomitant]
     Active Substance: OXYCODONE HYDROCHLORIDE
     Dosage: DF
     Dates: start: 20151116, end: 20151116
  13. OXYCODONE HYDROCHLORIDE (OXYCODONE HYDROCHLORIDE) [Concomitant]
     Active Substance: OXYCODONE HYDROCHLORIDE
     Indication: CANCER PAIN
     Dosage: DF
     Dates: start: 20151117, end: 20151117
  14. OXYCODONE HYDROCHLORIDE (OXYCODONE HYDROCHLORIDE) [Concomitant]
     Active Substance: OXYCODONE HYDROCHLORIDE
     Dosage: DF
     Dates: start: 20151115, end: 20151115
  15. OXYCODONE HYDROCHLORIDE (OXYCODONE HYDROCHLORIDE) [Concomitant]
     Active Substance: OXYCODONE HYDROCHLORIDE
     Dosage: DF
     Dates: start: 20151114, end: 20151114

REACTIONS (1)
  - Pulmonary embolism [Fatal]

NARRATIVE: CASE EVENT DATE: 20151121
